FAERS Safety Report 21672539 (Version 1)
Quarter: 2022Q4

REPORT INFORMATION
  Report Type: Spontaneous
  Country: US (occurrence: None)
  Receive Date: 20221201
  Receipt Date: 20221201
  Transmission Date: 20230113
  Serious: Yes (Death)
  Sender: FDA-Public Use
  Company Number: None

PATIENT
  Age: 92 Year
  Sex: Male

DRUGS (7)
  1. RAYALDEE [Suspect]
     Active Substance: CALCIFEDIOL
     Indication: Hyperparathyroidism secondary
     Dosage: FREQUENCY : DAILY;?
     Route: 048
     Dates: start: 20210608, end: 20221019
  2. ALLOPURINOL [Concomitant]
     Active Substance: ALLOPURINOL
  3. ELIQUIS [Concomitant]
     Active Substance: APIXABAN
  4. LISINOPRIL [Concomitant]
     Active Substance: LISINOPRIL
  5. METOLAZONE [Concomitant]
     Active Substance: METOLAZONE
  6. FUROSEMIDE [Concomitant]
     Active Substance: FUROSEMIDE
  7. AURYXIA [Concomitant]
     Active Substance: TETRAFERRIC TRICITRATE DECAHYDRATE

REACTIONS (1)
  - Death [None]

NARRATIVE: CASE EVENT DATE: 20221019
